FAERS Safety Report 4869540-5 (Version None)
Quarter: 2005Q4

REPORT INFORMATION
  Report Type: 
  Country: None (occurrence: None)
  Receive Date: 20051227
  Receipt Date: 20051213
  Transmission Date: 20060501
  Serious: Yes (Other)
  Sender: FDA-Public Use
  Company Number: DE-JNJFOC-20051203215

PATIENT
  Sex: Female

DRUGS (2)
  1. REMINYL (GALANTAMINE HBR) [Suspect]
  2. CITALOPRAM HYDROBROMIDE [Concomitant]

REACTIONS (1)
  - HYPOGLYCAEMIA [None]
